FAERS Safety Report 15986546 (Version 2)
Quarter: 2019Q1

REPORT INFORMATION
  Report Type: Report from Study
  Country: JP (occurrence: JP)
  Receive Date: 20190220
  Receipt Date: 20190305
  Transmission Date: 20190418
  Serious: Yes (Life-Threatening, Hospitalization, Other)
  Sender: FDA-Public Use
  Company Number: JP-BRISTOL-MYERS SQUIBB COMPANY-BMS-2019-010381

PATIENT
  Age: 40 Year
  Sex: Female
  Weight: 52.8 kg

DRUGS (15)
  1. SAWACILLIN [Concomitant]
     Active Substance: AMOXICILLIN
     Indication: SINUSITIS
     Dosage: 250 MG, Q8H
     Route: 048
     Dates: start: 20190124, end: 20190124
  2. SODIUM GUALENATE HYDRATE [Concomitant]
     Active Substance: SODIUM GUALENATE MONOHYDRATE
     Indication: SINUSITIS
     Dosage: DOSE UNSPECIFIED, PRN
     Route: 049
     Dates: start: 20190121, end: 20190124
  3. DEXTROMETHORPHAN HYDROBROMIDE. [Concomitant]
     Active Substance: DEXTROMETHORPHAN HYDROBROMIDE
     Indication: SINUSITIS
     Dosage: 25 MG, Q8H
     Route: 048
     Dates: start: 20190121, end: 20190124
  4. MIYA-BM [Concomitant]
     Active Substance: CLOSTRIDIUM BUTYRICUM SPORES STRAIN M-55
     Indication: CONSTIPATION
     Dosage: 3 DF, Q8H
     Route: 048
     Dates: start: 20180322
  5. AUGMENTIN [Concomitant]
     Active Substance: AMOXICILLIN\CLAVULANATE POTASSIUM
     Indication: SINUSITIS
     Dosage: 1 DF, Q8H
     Route: 048
     Dates: start: 20190124, end: 20190124
  6. CALONAL [Concomitant]
     Active Substance: ACETAMINOPHEN
     Indication: SINUSITIS
     Dosage: 200 MG, Q8H
     Route: 048
     Dates: start: 20190121, end: 20190124
  7. DEXAMETHASONE. [Suspect]
     Active Substance: DEXAMETHASONE
     Indication: PREMEDICATION
     Dosage: 8.25 MG
     Route: 041
     Dates: start: 20180208
  8. MOHRUS [Concomitant]
     Active Substance: KETOPROFEN
     Indication: MYALGIA
     Dosage: DOSE UNSPECIFIED, PRN
     Route: 061
     Dates: start: 20190124
  9. NIVOLUMAB [Suspect]
     Active Substance: NIVOLUMAB
     Indication: BREAST CANCER
     Dosage: 240 MG, UNK
     Route: 041
     Dates: start: 20180208
  10. BEVACIZUMAB. [Suspect]
     Active Substance: BEVACIZUMAB
     Indication: BREAST CANCER
     Dosage: 10 MG/KG, UNK
     Route: 041
     Dates: start: 20180208
  11. CARBOCISTEINE [Concomitant]
     Active Substance: CARBOCYSTEINE
     Indication: SINUSITIS
     Dosage: DOSE UNSPECIFIED, Q8H
     Route: 048
     Dates: start: 20190121, end: 20190124
  12. PACLITAXEL. [Suspect]
     Active Substance: PACLITAXEL
     Indication: BREAST CANCER
     Dosage: 90 MG/M2, UNK
     Route: 041
     Dates: start: 20180208
  13. URSODEOXYCHOLIC ACID [Concomitant]
     Active Substance: URSODIOL
     Indication: BILIARY TRACT DISORDER
     Dosage: 100 MG, Q8H
     Route: 048
     Dates: start: 20180412
  14. RUPAFIN [Concomitant]
     Active Substance: RUPATADINE FUMARATE
     Indication: SINUSITIS
     Dosage: 10 MG, EVERYDAY
     Route: 048
     Dates: start: 20190121, end: 20190124
  15. LYRICA [Concomitant]
     Active Substance: PREGABALIN
     Indication: PERIPHERAL SENSORY NEUROPATHY
     Dosage: 50 MG, Q12H
     Route: 048
     Dates: start: 20180830

REACTIONS (2)
  - Ventricular arrhythmia [Recovered/Resolved]
  - Viral pharyngitis [Recovered/Resolved]

NARRATIVE: CASE EVENT DATE: 20190119
